FAERS Safety Report 24412293 (Version 1)
Quarter: 2024Q4

REPORT INFORMATION
  Report Type: Spontaneous
  Country: FR (occurrence: FR)
  Receive Date: 20241008
  Receipt Date: 20241008
  Transmission Date: 20250115
  Serious: Yes (Other)
  Sender: BAUSCH AND LOMB
  Company Number: None

PATIENT
  Age: 97 Year
  Sex: Female

DRUGS (4)
  1. VENLAFAXINE [Suspect]
     Active Substance: VENLAFAXINE HYDROCHLORIDE
     Indication: Product used for unknown indication
     Route: 048
     Dates: start: 20240913, end: 20240913
  2. MORPHINE SULFATE [Suspect]
     Active Substance: MORPHINE SULFATE
     Indication: Product used for unknown indication
     Dosage: 20 MG/1 ML
     Route: 048
     Dates: start: 20240913, end: 20240913
  3. DOLIPRANE [Suspect]
     Active Substance: ACETAMINOPHEN
     Indication: Product used for unknown indication
     Route: 048
     Dates: start: 20240913, end: 20240913
  4. OXAZEPAM [Suspect]
     Active Substance: OXAZEPAM
     Indication: Product used for unknown indication
     Route: 048
     Dates: start: 20240913, end: 20240913

REACTIONS (4)
  - Oxygen saturation decreased [Recovered/Resolved]
  - Loss of consciousness [Recovered/Resolved]
  - Vomiting [Recovered/Resolved]
  - Wrong patient [Recovered/Resolved]

NARRATIVE: CASE EVENT DATE: 20240913
